FAERS Safety Report 12077952 (Version 1)
Quarter: 2016Q1

REPORT INFORMATION
  Report Type: Spontaneous
  Country: US (occurrence: US)
  Receive Date: 20160215
  Receipt Date: 20160215
  Transmission Date: 20160526
  Serious: Yes (Hospitalization)
  Sender: FDA-Public Use
  Company Number: PHHY2016US019136

PATIENT
  Age: 70 Year
  Sex: Female

DRUGS (2)
  1. LEVOTHYROXINE. [Concomitant]
     Active Substance: LEVOTHYROXINE
     Indication: HYPOTHYROIDISM
     Route: 065
  2. METFORMIN [Suspect]
     Active Substance: METFORMIN HYDROCHLORIDE
     Indication: TYPE 2 DIABETES MELLITUS
     Dosage: 500 MG, BID
     Route: 048

REACTIONS (9)
  - Chest discomfort [Unknown]
  - Chest pain [Unknown]
  - Blood alkaline phosphatase increased [Recovered/Resolved]
  - Nausea [Unknown]
  - Blood bilirubin increased [Recovered/Resolved]
  - Drug-induced liver injury [Recovering/Resolving]
  - Hepatocellular injury [Recovering/Resolving]
  - Aspartate aminotransferase increased [Recovered/Resolved]
  - Alanine aminotransferase increased [Recovered/Resolved]
